FAERS Safety Report 25404062 (Version 1)
Quarter: 2025Q2

REPORT INFORMATION
  Report Type: Spontaneous
  Country: US (occurrence: US)
  Receive Date: 20250606
  Receipt Date: 20250606
  Transmission Date: 20250716
  Serious: No
  Sender: JOHNSON AND JOHNSON
  Company Number: US-JNJFOC-20250601604

PATIENT
  Sex: Female

DRUGS (4)
  1. SPRAVATO [Suspect]
     Active Substance: ESKETAMINE
     Indication: Product used for unknown indication
     Dosage: FREQUENCY TWICE A WEEK AND ONCE WEEKLY
     Route: 045
     Dates: start: 20250319
  2. PAMELOR [Suspect]
     Active Substance: NORTRIPTYLINE HYDROCHLORIDE
  3. XANAX [Concomitant]
     Active Substance: ALPRAZOLAM
     Indication: Product used for unknown indication
  4. AUVELITY [Concomitant]
     Active Substance: BUPROPION HYDROCHLORIDE\DEXTROMETHORPHAN HYDROBROMIDE
     Indication: Product used for unknown indication

REACTIONS (6)
  - Urinary tract infection [Unknown]
  - Migraine [Unknown]
  - Depression [Unknown]
  - Crying [Unknown]
  - Anxiety [Unknown]
  - Pruritus [Unknown]
